FAERS Safety Report 20469792 (Version 1)
Quarter: 2022Q1

REPORT INFORMATION
  Report Type: Spontaneous
  Country: US (occurrence: None)
  Receive Date: 20220213
  Receipt Date: 20220213
  Transmission Date: 20220423
  Serious: No
  Sender: FDA-Public Use
  Company Number: None

PATIENT
  Age: 70 Year
  Sex: Female

DRUGS (1)
  1. CARVEDILOL [Suspect]
     Active Substance: CARVEDILOL
     Indication: Hypertension
     Dates: start: 20220103

REACTIONS (7)
  - Dizziness [None]
  - Sinus disorder [None]
  - Dizziness [None]
  - Tinnitus [None]
  - Hypertension [None]
  - Headache [None]
  - Dyspnoea [None]
